FAERS Safety Report 13780384 (Version 1)
Quarter: 2017Q3

REPORT INFORMATION
  Report Type: Spontaneous
  Country: US (occurrence: US)
  Receive Date: 20170724
  Receipt Date: 20170724
  Transmission Date: 20171127
  Serious: Yes (Other)
  Sender: FDA-Public Use
  Company Number: US-009507513-1707USA008733

PATIENT
  Age: 85 Year
  Sex: Female

DRUGS (1)
  1. ZOCOR [Suspect]
     Active Substance: SIMVASTATIN
     Dosage: UNK, REPORTED AS ^TAKING SIMVASTATIN (ZOCOR) YEARS AGO^
     Route: 048

REACTIONS (1)
  - Gait inability [Recovered/Resolved]
